FAERS Safety Report 14797547 (Version 3)
Quarter: 2018Q3

REPORT INFORMATION
  Report Type: Report from Study
  Country: US (occurrence: US)
  Receive Date: 20180424
  Receipt Date: 20180905
  Transmission Date: 20181010
  Serious: Yes (Other)
  Sender: FDA-Public Use
  Company Number: PHEH2018US015487

PATIENT
  Age: 53 Year
  Sex: Female
  Weight: 62.13 kg

DRUGS (1)
  1. GILENYA [Suspect]
     Active Substance: FINGOLIMOD HYDROCHLORIDE
     Indication: MULTIPLE SCLEROSIS
     Dosage: 0.5 MG, QD
     Route: 048
     Dates: start: 20180323

REACTIONS (17)
  - Decreased appetite [Not Recovered/Not Resolved]
  - Gait disturbance [Unknown]
  - Aspartate aminotransferase increased [Recovering/Resolving]
  - Pain in extremity [Not Recovered/Not Resolved]
  - Tremor [Not Recovered/Not Resolved]
  - Malaise [Unknown]
  - Spider vein [Not Recovered/Not Resolved]
  - Blood thyroid stimulating hormone increased [Recovering/Resolving]
  - Neuropathy peripheral [Not Recovered/Not Resolved]
  - Insomnia [Not Recovered/Not Resolved]
  - Vitamin D increased [Recovering/Resolving]
  - Vitamin B12 increased [Recovering/Resolving]
  - Hyporeflexia [Unknown]
  - Weight decreased [Not Recovered/Not Resolved]
  - Feeling abnormal [Unknown]
  - Spinal disorder [Not Recovered/Not Resolved]
  - Alanine aminotransferase increased [Recovering/Resolving]

NARRATIVE: CASE EVENT DATE: 20180730
